FAERS Safety Report 15497225 (Version 2)
Quarter: 2018Q4

REPORT INFORMATION
  Report Type: Spontaneous
  Country: US (occurrence: US)
  Receive Date: 20181015
  Receipt Date: 20181106
  Transmission Date: 20190205
  Serious: No
  Sender: FDA-Public Use
  Company Number: US-PFIZER INC-2018412656

PATIENT
  Age: 58 Year
  Sex: Female

DRUGS (8)
  1. PROMETRIUM [PROGESTERONE] [Concomitant]
     Indication: BLOOD TESTOSTERONE ABNORMAL
  2. ESTRING [Suspect]
     Active Substance: ESTRADIOL
     Indication: HORMONE THERAPY
  3. ESTRING [Suspect]
     Active Substance: ESTRADIOL
     Indication: BLOOD TESTOSTERONE ABNORMAL
  4. ESTRING [Suspect]
     Active Substance: ESTRADIOL
     Indication: MENOPAUSAL SYMPTOMS
     Dosage: UNK
  5. ESTRING [Suspect]
     Active Substance: ESTRADIOL
     Indication: HORMONE LEVEL ABNORMAL
  6. PROMETRIUM [PROGESTERONE] [Concomitant]
     Indication: HORMONE LEVEL ABNORMAL
     Dosage: 200 MG, 1X/DAY [NIGHTLY]
  7. PROMETRIUM [PROGESTERONE] [Concomitant]
     Indication: MENOPAUSAL SYMPTOMS
  8. ESTRING [Suspect]
     Active Substance: ESTRADIOL
     Indication: MENOPAUSAL DISORDER

REACTIONS (1)
  - Drug ineffective for unapproved indication [Unknown]
